FAERS Safety Report 8017514-8 (Version None)
Quarter: 2011Q4

REPORT INFORMATION
  Report Type: 
  Country: None (occurrence: None)
  Receive Date: 20111228
  Receipt Date: 20111228
  Transmission Date: 20120403
  Serious: Yes (Other)
  Sender: FDA-Public Use
  Company Number: None

PATIENT
  Sex: Female
  Weight: 170.0989 kg

DRUGS (1)
  1. NUVIGIL [Suspect]
     Indication: HYPERSOMNIA
     Dosage: 250MG 1 DAILY P.O.
     Route: 048
     Dates: start: 20111208, end: 20111210

REACTIONS (7)
  - WRONG TECHNIQUE IN DRUG USAGE PROCESS [None]
  - RASH [None]
  - EYELIDS PRURITUS [None]
  - PYREXIA [None]
  - INSOMNIA [None]
  - LIP DRY [None]
  - PRURITUS [None]
